FAERS Safety Report 24396467 (Version 1)
Quarter: 2024Q4

REPORT INFORMATION
  Report Type: Spontaneous
  Country: US (occurrence: US)
  Receive Date: 20241004
  Receipt Date: 20241004
  Transmission Date: 20250114
  Serious: Yes (Life-Threatening, Hospitalization, Other)
  Sender: RANBAXY
  Company Number: US-SUN PHARMACEUTICAL INDUSTRIES LTD-2024R1-471494

PATIENT
  Age: 33 Year
  Sex: Female

DRUGS (5)
  1. FERROUS SULFATE [Suspect]
     Active Substance: FERROUS SULFATE
     Indication: HIV infection
     Dosage: UNK
     Route: 065
  2. ONDANSETRON [Suspect]
     Active Substance: ONDANSETRON
     Indication: HIV infection
     Dosage: UNK
     Route: 065
  3. EMTRICITABINE\TENOFOVIR [Suspect]
     Active Substance: EMTRICITABINE\TENOFOVIR
     Indication: HIV infection
     Dosage: UNK
     Route: 065
  4. MISOPROSTOL [Suspect]
     Active Substance: MISOPROSTOL
     Indication: Induced labour
     Dosage: UNK
     Route: 065
  5. BICTEGRAVIR [Suspect]
     Active Substance: BICTEGRAVIR
     Indication: HIV infection
     Dosage: UNK
     Route: 065

REACTIONS (8)
  - Anaphylactoid syndrome of pregnancy [Unknown]
  - Exposure during pregnancy [Unknown]
  - Live birth [Unknown]
  - Pulseless electrical activity [Unknown]
  - Cardiac arrest [Unknown]
  - Postpartum haemorrhage [Unknown]
  - Foetal heart rate deceleration abnormality [Unknown]
  - Uterine atony [Unknown]
